FAERS Safety Report 6902554-X (Version None)
Quarter: 2010Q3

REPORT INFORMATION
  Report Type: 
  Country: None (occurrence: None)
  Receive Date: 20100730
  Receipt Date: 20100714
  Transmission Date: 20110219
  Serious: Yes (Hospitalization, Other)
  Sender: FDA-Public Use
  Company Number: 2009S1003626

PATIENT
  Age: 65 Year
  Sex: Female

DRUGS (2)
  1. PHOSPHOSODA FLAVOR NOT SPECIFIED [Suspect]
     Indication: COLONOSCOPY
     Dosage: ;PO
     Route: 048
     Dates: start: 20060719, end: 20060719
  2. PRILOSEC [Concomitant]

REACTIONS (10)
  - ANAEMIA [None]
  - DIARRHOEA [None]
  - INFLUENZA [None]
  - INJURY [None]
  - NAUSEA [None]
  - RASH [None]
  - RENAL FAILURE ACUTE [None]
  - RENAL FAILURE CHRONIC [None]
  - TUBULOINTERSTITIAL NEPHRITIS [None]
  - VOMITING [None]
